FAERS Safety Report 7634507-0 (Version None)
Quarter: 2011Q3

REPORT INFORMATION
  Report Type: 
  Country: None (occurrence: None)
  Receive Date: 20110725
  Receipt Date: 20110720
  Transmission Date: 20111222
  Serious: Yes (Death, Hospitalization)
  Sender: FDA-Public Use
  Company Number: US-ASTRAZENECA-2011SE16238

PATIENT
  Age: 57 Year
  Sex: Female

DRUGS (2)
  1. PULMICORT [Suspect]
     Route: 055
  2. SYMBICORT [Suspect]
     Route: 055

REACTIONS (4)
  - MYOCARDIAL INFARCTION [None]
  - CHRONIC OBSTRUCTIVE PULMONARY DISEASE [None]
  - MALAISE [None]
  - DRUG DOSE OMISSION [None]
